FAERS Safety Report 6287528-7 (Version None)
Quarter: 2009Q3

REPORT INFORMATION
  Report Type: 
  Country: None (occurrence: None)
  Receive Date: 20090727
  Receipt Date: 20090715
  Transmission Date: 20100115
  Serious: Yes (Other)
  Sender: FDA-Public Use
  Company Number: 8033210

PATIENT
  Age: 31 Year
  Sex: Female

DRUGS (3)
  1. KEPPRA [Suspect]
     Dosage: 1500 MG
     Dates: end: 20080413
  2. VITAMIN TAB [Concomitant]
  3. FOLIC ACID [Concomitant]

REACTIONS (6)
  - ABORTION SPONTANEOUS [None]
  - CAESAREAN SECTION [None]
  - CONDITION AGGRAVATED [None]
  - INSOMNIA [None]
  - PETIT MAL EPILEPSY [None]
  - SPEECH DISORDER [None]
